FAERS Safety Report 25816438 (Version 1)
Quarter: 2025Q3

REPORT INFORMATION
  Report Type: Spontaneous
  Country: US (occurrence: US)
  Receive Date: 20250918
  Receipt Date: 20250918
  Transmission Date: 20251021
  Serious: No
  Sender: PADAGIS
  Company Number: US-PADAGIS-2025PAD01099

PATIENT

DRUGS (2)
  1. TRIAMCINOLONE ACETONIDE [Suspect]
     Active Substance: TRIAMCINOLONE ACETONIDE
     Indication: Eczema
     Route: 067
  2. PARAFFIN [Suspect]
     Active Substance: PARAFFIN
     Indication: Product used for unknown indication
     Route: 065

REACTIONS (2)
  - Pigmentation disorder [Not Recovered/Not Resolved]
  - Incorrect route of product administration [Unknown]
